FAERS Safety Report 4735343-5 (Version None)
Quarter: 2005Q3

REPORT INFORMATION
  Report Type: 
  Country: None (occurrence: None)
  Receive Date: 20050805
  Receipt Date: 20050511
  Transmission Date: 20060218
  Serious: Yes (Hospitalization)
  Sender: FDA-Public Use
  Company Number: DE-ROCHE-404460

PATIENT
  Age: 79 Year
  Sex: Female
  Weight: 55 kg

DRUGS (10)
  1. IBANDRONIC ACID [Suspect]
     Indication: OSTEOPOROSIS POSTMENOPAUSAL
     Route: 048
     Dates: start: 20041019, end: 20041219
  2. ALENDRONIC ACID [Suspect]
     Indication: OSTEOPOROSIS POSTMENOPAUSAL
     Route: 048
     Dates: start: 20050119, end: 20050120
  3. ALENDRONIC ACID [Suspect]
     Route: 048
     Dates: start: 20050317
  4. SIMVASTATIN [Concomitant]
     Dates: start: 20020315
  5. ASPIRIN [Concomitant]
     Dates: start: 20020315
  6. CALCIUM/VITAMIN D3 [Concomitant]
     Dosage: DISCONTINUED BETWEEN 20 JAN 2005 AND 14 MARCH 2005.
     Route: 048
     Dates: start: 20041007
  7. METOPROLOL [Concomitant]
     Dates: start: 20050315
  8. NITRENDIPIN [Concomitant]
     Dates: start: 20020315, end: 20041010
  9. AMLODIPINE [Concomitant]
     Dates: start: 20020315
  10. RAMIPRIL [Concomitant]
     Dates: start: 20020315

REACTIONS (2)
  - DYSPNOEA [None]
  - TEMPORAL ARTERITIS [None]
